FAERS Safety Report 9934704 (Version 1)
Quarter: 2014Q1

REPORT INFORMATION
  Report Type: Spontaneous
  Country: US (occurrence: US)
  Receive Date: 20140228
  Receipt Date: 20140228
  Transmission Date: 20141002
  Serious: No
  Sender: FDA-Public Use
  Company Number: US-ASTRAZENECA-2013SE52060

PATIENT
  Age: 63 Year
  Sex: Male
  Weight: 67.1 kg

DRUGS (5)
  1. TOPROL XL [Suspect]
     Indication: ATRIAL FIBRILLATION
     Route: 048
  2. TOPROL XL [Suspect]
     Indication: ATRIAL FIBRILLATION
     Route: 048
     Dates: start: 20130711
  3. TOPROL XL [Suspect]
     Indication: ATRIAL FIBRILLATION
     Dosage: DAILY
     Route: 048
  4. ZOLOFT [Concomitant]
     Indication: DEATH OF RELATIVE
     Dosage: 100 OR 50 MG DAILY
     Route: 048
     Dates: start: 2011
  5. KLONOPIN [Concomitant]
     Indication: DEATH OF RELATIVE
     Dosage: LOWEST- NOT SURE DAILY
     Route: 048
     Dates: start: 2011

REACTIONS (3)
  - Alopecia [Unknown]
  - Fatigue [Unknown]
  - Off label use [Unknown]
